FAERS Safety Report 10916368 (Version 1)
Quarter: 2015Q1

REPORT INFORMATION
  Report Type: Spontaneous
  Country: US (occurrence: None)
  Receive Date: 20150312
  Receipt Date: 20150312
  Transmission Date: 20150721
  Serious: Yes (Hospitalization, Other)
  Sender: FDA-Public Use
  Company Number: None

PATIENT
  Age: 61 Year
  Sex: Male
  Weight: 56.7 kg

DRUGS (3)
  1. GAMMAGARD [Suspect]
     Active Substance: HUMAN IMMUNOGLOBULIN G
     Indication: SEIZURE
     Route: 042
     Dates: start: 20141216, end: 20141218
  2. GAMMAGARD [Suspect]
     Active Substance: HUMAN IMMUNOGLOBULIN G
     Route: 042
     Dates: start: 20141216, end: 20141218
  3. GAMMAGARD [Concomitant]
     Active Substance: HUMAN IMMUNOGLOBULIN G
     Dates: start: 20150109, end: 20150213

REACTIONS (7)
  - Asthenia [None]
  - Liver function test abnormal [None]
  - Hepatitis C antibody positive [None]
  - Headache [None]
  - Photopsia [None]
  - Dizziness [None]
  - Serum ferritin increased [None]

NARRATIVE: CASE EVENT DATE: 20150217
